FAERS Safety Report 7240703-7 (Version None)
Quarter: 2011Q1

REPORT INFORMATION
  Report Type: 
  Country: None (occurrence: None)
  Receive Date: 20110124
  Receipt Date: 20100629
  Transmission Date: 20110831
  Serious: No
  Sender: FDA-Public Use
  Company Number: US-KINGPHARMUSA00001-K201000826

PATIENT
  Age: 3 Year
  Sex: Male
  Weight: 14.966 kg

DRUGS (1)
  1. EPIPEN [Suspect]
     Dosage: UNK
     Route: 048
     Dates: start: 20100629, end: 20100629

REACTIONS (1)
  - ACCIDENTAL DRUG INTAKE BY CHILD [None]
